FAERS Safety Report 10899083 (Version 1)
Quarter: 2015Q1

REPORT INFORMATION
  Report Type: Spontaneous
  Country: FR (occurrence: FR)
  Receive Date: 20150309
  Receipt Date: 20150309
  Transmission Date: 20150721
  Serious: Yes (Hospitalization, Other)
  Sender: FDA-Public Use
  Company Number: FR-PFIZER INC-2015076993

PATIENT
  Age: 16 Year
  Sex: Male
  Weight: 64 kg

DRUGS (1)
  1. ADVILMED [Suspect]
     Active Substance: IBUPROFEN
     Dosage: 400 MG, 3X/DAY

REACTIONS (2)
  - Renal failure [Unknown]
  - Weight decreased [Unknown]

NARRATIVE: CASE EVENT DATE: 201501
